FAERS Safety Report 15363554 (Version 10)
Quarter: 2022Q3

REPORT INFORMATION
  Report Type: Spontaneous
  Country: JP (occurrence: JP)
  Receive Date: 20180907
  Receipt Date: 20220810
  Transmission Date: 20221027
  Serious: Yes (Hospitalization, Other)
  Sender: FDA-Public Use
  Company Number: JP-MSD-M2018-28093

PATIENT
  Age: 68 Year
  Sex: Male
  Weight: 53 kg

DRUGS (15)
  1. KEYTRUDA [Suspect]
     Active Substance: PEMBROLIZUMAB
     Indication: Lung adenocarcinoma stage IV
     Dosage: 200 MILLIGRAM, Q3W
     Route: 041
     Dates: start: 20171026, end: 20171221
  2. DEXTROMETHORPHAN HYDROBROMIDE [Concomitant]
     Active Substance: DEXTROMETHORPHAN HYDROBROMIDE
     Indication: Cough
     Dosage: 15 MILLIGRAM, TID
     Route: 048
     Dates: start: 20170420, end: 20180426
  3. CARBAZOCHROME SODIUM SULFONATE [Concomitant]
     Active Substance: CARBAZOCHROME SODIUM SULFONATE
     Indication: Haemoptysis
     Dosage: 30 MILLIGRAM, TID
     Route: 048
     Dates: start: 20170420, end: 201808
  4. TRANSAMIN [Concomitant]
     Active Substance: TRANEXAMIC ACID
     Indication: Haemoptysis
     Dosage: 250 MILLIGRAM, TID
     Route: 048
     Dates: start: 20170420, end: 201808
  5. PITAVASTATIN CALCIUM [Concomitant]
     Active Substance: PITAVASTATIN CALCIUM
     Indication: Dyslipidaemia
     Dosage: 2 MILLIGRAM, QD
     Route: 048
     Dates: start: 20170531, end: 201808
  6. ALLOPURINOL [Concomitant]
     Active Substance: ALLOPURINOL
     Indication: Hyperuricaemia
     Dosage: 100 MILLIGRAM, QD
     Route: 048
     Dates: start: 20170531, end: 201808
  7. CALONAL [Concomitant]
     Active Substance: ACETAMINOPHEN
     Indication: Pain
     Dosage: 400 MILLIGRAM, QID
     Route: 048
     Dates: start: 20170502, end: 201808
  8. MAGNESIUM OXIDE [Concomitant]
     Active Substance: MAGNESIUM OXIDE
     Indication: Constipation
     Dosage: 330 MILLIGRAM, TID
     Route: 048
     Dates: start: 20171005, end: 20180621
  9. LOXOPROFEN SODIUM [Concomitant]
     Active Substance: LOXOPROFEN SODIUM
     Indication: Pain
     Dosage: 60 MILLIGRAM, PRN
     Route: 048
     Dates: start: 20170420, end: 201806
  10. METOCLOPRAMIDE [Concomitant]
     Active Substance: METOCLOPRAMIDE
     Indication: Nausea
     Dosage: 5 MILLIGRAM, PRN
     Route: 048
     Dates: start: 20171026, end: 201808
  11. CODEINE PHOSPHATE [Concomitant]
     Active Substance: CODEINE PHOSPHATE
     Indication: Cough
     Dosage: 20 MILLIGRAM, PRN
     Route: 048
     Dates: start: 20171004, end: 201806
  12. ABRAXANE [Concomitant]
     Active Substance: PACLITAXEL
     Dosage: 137.6 MILLIGRAM
     Route: 042
     Dates: start: 20180124, end: 20180405
  13. CARBOPLATIN [Concomitant]
     Active Substance: CARBOPLATIN
     Dosage: 500 MILLIGRAM
     Route: 042
     Dates: start: 20180124, end: 20180405
  14. ALOXI [Concomitant]
     Active Substance: PALONOSETRON HYDROCHLORIDE
     Dosage: 0.75 MILLIGRAM
     Route: 042
     Dates: start: 20180124, end: 20180405
  15. DEXAMETHASONE SODIUM PHOSPHATE [Concomitant]
     Active Substance: DEXAMETHASONE SODIUM PHOSPHATE
     Dosage: 6.6 MILLIGRAM
     Route: 042
     Dates: start: 20180124, end: 20180405

REACTIONS (3)
  - Cholangitis sclerosing [Not Recovered/Not Resolved]
  - Malignant neoplasm progression [Unknown]
  - Cancer pain [Unknown]

NARRATIVE: CASE EVENT DATE: 20180412
